FAERS Safety Report 8207629-3 (Version None)
Quarter: 2012Q1

REPORT INFORMATION
  Report Type: 
  Country: None (occurrence: None)
  Receive Date: 20120314
  Receipt Date: 20120314
  Transmission Date: 20120608
  Serious: Yes (Other)
  Sender: FDA-Public Use
  Company Number: None

PATIENT
  Sex: Female

DRUGS (6)
  1. XANAX [Concomitant]
  2. LORTAB [Concomitant]
  3. CIPROFLOXACIN [Suspect]
     Dosage: ONE TABLET
     Route: 048
     Dates: start: 20090624, end: 20090710
  4. NOVOCAIN [Concomitant]
  5. NITROUS OXIDE [Concomitant]
  6. PREDNISONE [Concomitant]

REACTIONS (15)
  - COELIAC DISEASE [None]
  - PHOTOPHOBIA [None]
  - SWELLING FACE [None]
  - TRICHOTILLOMANIA [None]
  - DIPLOPIA [None]
  - ALOPECIA [None]
  - MUSCLE DISORDER [None]
  - TINNITUS [None]
  - DRY MOUTH [None]
  - BLINDNESS [None]
  - DYSGEUSIA [None]
  - WEIGHT INCREASED [None]
  - MENOPAUSE [None]
  - GLOSSODYNIA [None]
  - ABDOMINAL PAIN UPPER [None]
